FAERS Safety Report 6468292-5 (Version None)
Quarter: 2009Q4

REPORT INFORMATION
  Report Type: 
  Country: None (occurrence: None)
  Receive Date: 20091130
  Receipt Date: 20091116
  Transmission Date: 20100525
  Serious: Yes (Life-Threatening)
  Sender: FDA-Public Use
  Company Number: 2009AL007337

PATIENT
  Age: 59 Year
  Sex: Male

DRUGS (6)
  1. METFORMIN HCL [Suspect]
     Indication: DIABETES MELLITUS
     Dosage: 3.4 GM;QD;PO
     Route: 048
  2. IBUPROFEN ORAL SUSPENSION            100 MG/5 ML (RX) [Suspect]
     Dosage: 800 MG;TID;PO
     Route: 048
  3. RENITEC COMP. [Concomitant]
  4. PARALGIN FORTE [Concomitant]
  5. AMARYL [Concomitant]
  6. SIMVASTATIN [Concomitant]

REACTIONS (7)
  - ABDOMINAL PAIN UPPER [None]
  - HAEMODIALYSIS [None]
  - HYPERVENTILATION [None]
  - KNEE OPERATION [None]
  - LACTIC ACIDOSIS [None]
  - NAUSEA [None]
  - RENAL FAILURE [None]
